FAERS Safety Report 6682944-3 (Version None)
Quarter: 2010Q2

REPORT INFORMATION
  Report Type: 
  Country: None (occurrence: None)
  Receive Date: 20100413
  Receipt Date: 20100404
  Transmission Date: 20101027
  Serious: Yes (Congenital Anomaly, Other)
  Sender: FDA-Public Use
  Company Number: 8028572

PATIENT
  Sex: Female
  Weight: 7 kg

DRUGS (6)
  1. KEPPRA [Suspect]
     Indication: CONVULSION
     Dosage: 3000 MG, DAILY TRANSPLACENTAL, 3500 MG, DOSE FREQ.: DAILY TRANSPLACENTAL
     Route: 064
  2. LAMICTAL [Concomitant]
  3. PROCARDIA [Concomitant]
  4. FOLIC ACID [Concomitant]
  5. VITAMIN TAB [Concomitant]
  6. BETAMETHASONE [Concomitant]

REACTIONS (6)
  - FOETAL GROWTH RETARDATION [None]
  - FOOT DEFORMITY [None]
  - HAEMANGIOMA [None]
  - MATERNAL DRUGS AFFECTING FOETUS [None]
  - PREMATURE BABY [None]
  - SMALL FOR DATES BABY [None]
